FAERS Safety Report 7445338-9 (Version None)
Quarter: 2011Q2

REPORT INFORMATION
  Report Type: 
  Country: None (occurrence: None)
  Receive Date: 20110429
  Receipt Date: 20110124
  Transmission Date: 20111010
  Serious: No
  Sender: FDA-Public Use
  Company Number: A0910041A

PATIENT
  Age: 27 Year
  Sex: Male

DRUGS (3)
  1. COMPAZINE [Suspect]
     Route: 065
  2. ZOFRAN [Suspect]
     Route: 065
  3. TEMODAR [Suspect]
     Indication: GLIOBLASTOMA
     Route: 065

REACTIONS (3)
  - VOMITING [None]
  - NAUSEA [None]
  - DERMATITIS ALLERGIC [None]
